FAERS Safety Report 5475153-7 (Version None)
Quarter: 2007Q4

REPORT INFORMATION
  Report Type: 
  Country: None (occurrence: None)
  Receive Date: 20071002
  Receipt Date: 20070920
  Transmission Date: 20080405
  Serious: Yes (Other)
  Sender: FDA-Public Use
  Company Number: US-PFIZER INC-2007070595

PATIENT
  Sex: Male
  Weight: 90.7 kg

DRUGS (2)
  1. CHANTIX [Suspect]
     Indication: SMOKING CESSATION THERAPY
     Dates: start: 20070323, end: 20070730
  2. ZOLOFT [Suspect]
     Indication: DEPRESSION
     Dates: start: 20070801, end: 20070801

REACTIONS (9)
  - ANXIETY [None]
  - DEPRESSION [None]
  - DRUG INTOLERANCE [None]
  - FEELING ABNORMAL [None]
  - INSOMNIA [None]
  - LIMB OPERATION [None]
  - NAUSEA [None]
  - SOCIAL AVOIDANT BEHAVIOUR [None]
  - WOUND INFECTION STAPHYLOCOCCAL [None]
